FAERS Safety Report 7933654-3 (Version None)
Quarter: 2011Q4

REPORT INFORMATION
  Report Type: 
  Country: None (occurrence: None)
  Receive Date: 20111122
  Receipt Date: 20111111
  Transmission Date: 20120403
  Serious: Yes (Other)
  Sender: FDA-Public Use
  Company Number: PHEH2011US009166

PATIENT
  Sex: Female

DRUGS (7)
  1. ACTONEL [Concomitant]
     Indication: BONE DISORDER
     Dosage: UNK
  2. PREMARIN [Suspect]
     Dosage: UNK
     Route: 048
  3. ESTRADERM [Suspect]
     Dosage: 0.5 MG, QOD
     Route: 062
  4. ALPRAZOLAM [Concomitant]
     Indication: PANIC ATTACK
     Dosage: UNK
  5. ESTRADERM [Suspect]
     Dosage: 0.05 MG, TWICE WEEKLY
     Route: 062
  6. ESTRADERM [Suspect]
     Dosage: 0.1 MG, TWICE WEEKLY
     Route: 062
  7. WELLBUTRIN [Concomitant]
     Dosage: UNK

REACTIONS (5)
  - FIBROMYALGIA [None]
  - FEELING ABNORMAL [None]
  - HEADACHE [None]
  - INCORRECT DOSE ADMINISTERED [None]
  - BLOOD OESTROGEN DECREASED [None]
